FAERS Safety Report 5720904-7 (Version None)
Quarter: 2008Q2

REPORT INFORMATION
  Report Type: 
  Country: None (occurrence: None)
  Receive Date: 20080429
  Receipt Date: 20080414
  Transmission Date: 20081010
  Serious: Yes (Death, Other)
  Sender: FDA-Public Use
  Company Number: US-BAYER-US-2007-002078

PATIENT
  Age: 15 Year
  Sex: Male
  Weight: 35 kg

DRUGS (66)
  1. MAGNEVIST [Suspect]
     Indication: NUCLEAR MAGNETIC RESONANCE IMAGING
     Dosage: UNIT DOSE: 10 ML
     Dates: start: 20040522, end: 20040522
  2. OMNISCAN [Suspect]
     Indication: NUCLEAR MAGNETIC RESONANCE IMAGING
     Dates: start: 20030323, end: 20030323
  3. OMNISCAN [Suspect]
     Dosage: UNIT DOSE: 8.8 ML
     Dates: start: 20030825, end: 20030825
  4. OMNISCAN [Suspect]
     Dates: start: 20041020, end: 20041020
  5. OMNISCAN [Suspect]
     Dosage: UNIT DOSE: 8 ML
     Dates: start: 20040219, end: 20040219
  6. OMNISCAN [Suspect]
     Dates: start: 20030918, end: 20030918
  7. OMNISCAN [Suspect]
     Dosage: UNIT DOSE: 8 ML
     Dates: start: 20030730, end: 20030730
  8. OMNISCAN [Suspect]
     Dates: start: 20040802, end: 20040802
  9. OPTIMARK [Suspect]
     Indication: NUCLEAR MAGNETIC RESONANCE IMAGING
     Dosage: UNIT DOSE: 9 ML
     Dates: start: 20040514, end: 20040514
  10. PROHANCE [Suspect]
     Indication: NUCLEAR MAGNETIC RESONANCE IMAGING
  11. MULTIHANCE [Suspect]
     Indication: NUCLEAR MAGNETIC RESONANCE IMAGING
  12. MDP-SQUIBB [Concomitant]
     Dosage: UNIT DOSE: 10.4 MCI
     Route: 042
     Dates: start: 20010605, end: 20010605
  13. MDP-SQUIBB [Concomitant]
     Dosage: UNIT DOSE: 11 MCI
     Dates: start: 20030324, end: 20030324
  14. MDP-SQUIBB [Concomitant]
     Dosage: UNIT DOSE: 8.8 MCI
     Route: 042
     Dates: start: 20010824, end: 20010824
  15. DIGOXIN [Concomitant]
     Dosage: UNIT DOSE: 2 ML
  16. CAPTOPRIL [Concomitant]
     Dosage: UNIT DOSE: 12.5 MG
  17. ROCALTROL [Concomitant]
     Dosage: UNIT DOSE: 0.25 ?G
  18. BICITRA [Concomitant]
     Dosage: UNIT DOSE: 11.7 MCI
  19. BICITRA [Concomitant]
     Dosage: UNIT DOSE: 15 ML
  20. BICITRA [Concomitant]
     Dates: start: 20030825
  21. BICITRA [Concomitant]
     Dates: start: 20030825
  22. BICITRA [Concomitant]
     Dates: start: 20030825
  23. BICITRA [Concomitant]
     Dates: end: 20030825
  24. BICITRA [Concomitant]
     Dates: start: 20030825
  25. TUMS [Concomitant]
  26. VINCRISTINE [Concomitant]
     Dates: start: 20010101
  27. ADRIAMYCIN PFS [Concomitant]
     Dates: start: 20010101
  28. CYTOXAN [Concomitant]
     Dates: start: 20010101
  29. FILGRASTIM [Concomitant]
     Dosage: UNIT DOSE: 200 ?G
     Route: 058
     Dates: start: 20010607
  30. DEXAMETHASONE [Concomitant]
     Dosage: UNIT DOSE: 2 MG
     Route: 048
     Dates: start: 20010607
  31. RANITIDINE [Concomitant]
     Dosage: UNIT DOSE: 75 MG
     Route: 048
     Dates: start: 20010607
  32. METOCLOPRAMIDE [Concomitant]
  33. DIPHENHYDRAMINE HCL [Concomitant]
  34. ONDANSETRON [Concomitant]
  35. AMLODIPINE [Concomitant]
  36. EPOETIN ALFA [Concomitant]
     Dates: start: 20010603
  37. EPOETIN ALFA [Concomitant]
     Dates: start: 20040522, end: 20040523
  38. ALLOPURINOL [Concomitant]
     Dosage: UNIT DOSE: 50 MG
     Route: 048
     Dates: start: 20010531
  39. CALCIUM CARBONATE [Concomitant]
     Route: 048
     Dates: start: 20010530
  40. FERROUS SULFATE TAB [Concomitant]
     Route: 048
     Dates: start: 20010530
  41. MESNA [Concomitant]
  42. LASIX [Concomitant]
     Route: 042
     Dates: start: 20010607, end: 20010607
  43. TISSUE PLASMINOGEN ACTIVATOR, RECOMBINATIVE [Concomitant]
     Indication: CATHETER RELATED COMPLICATION
     Dosage: UNIT DOSE: 1 MG
     Route: 042
     Dates: start: 20010628, end: 20010628
  44. IFOSFAMIDE [Concomitant]
     Dates: start: 20010625, end: 20010627
  45. ETOPOSIDE [Concomitant]
     Dates: start: 20010625, end: 20010627
  46. FOLIC ACID [Concomitant]
  47. VITAMIN B COMPLEX CAP [Concomitant]
     Dates: start: 20040421
  48. BACTRIM [Concomitant]
  49. TYLENOL [Concomitant]
     Indication: ARTHRALGIA
  50. NEPHRO-VITE RX [Concomitant]
  51. SODIUM BICARBONATE [Concomitant]
  52. NEURONTIN [Concomitant]
     Indication: CONVULSION
     Dosage: UNIT DOSE: 100 MG
     Route: 048
     Dates: start: 20030401
  53. NEURONTIN [Concomitant]
     Dosage: UNIT DOSE: 50 MG
     Route: 048
     Dates: start: 20030301
  54. PHOSLO [Concomitant]
  55. TOPAMAX [Concomitant]
  56. CARBATROL [Concomitant]
     Dosage: UNIT DOSE: 100 MG
     Route: 048
     Dates: start: 20040612
  57. VICODIN [Concomitant]
  58. AMITRIPTYLINE HCL [Concomitant]
  59. DEPAKOTE [Concomitant]
     Dates: start: 20040601
  60. RENAGEL [Concomitant]
     Dates: start: 20040601
  61. RED BLOOD CELLS [Concomitant]
     Dosage: UNIT DOSE: 300 ML
     Dates: start: 20020306, end: 20020306
  62. RED BLOOD CELLS [Concomitant]
     Dates: start: 20040923, end: 20040923
  63. RED BLOOD CELLS [Concomitant]
     Dosage: UNIT DOSE: 300 ML
     Dates: start: 20041223, end: 20041223
  64. RED BLOOD CELLS [Concomitant]
     Dates: start: 20041224, end: 20041224
  65. REGRANEX ^ORTHO-MCNEIL^ [Concomitant]
     Dates: start: 20041001
  66. TPN [Concomitant]
     Dates: start: 20040901

REACTIONS (2)
  - CARDIAC ARREST [None]
  - NEPHROGENIC SYSTEMIC FIBROSIS [None]
